FAERS Safety Report 12781922 (Version 1)
Quarter: 2016Q3

REPORT INFORMATION
  Report Type: Report from Study
  Country: GB (occurrence: GB)
  Receive Date: 20160926
  Receipt Date: 20160926
  Transmission Date: 20161109
  Serious: Yes (Hospitalization)
  Sender: FDA-Public Use
  Company Number: GB-ABBVIE-16K-167-1734474-00

PATIENT
  Sex: Female

DRUGS (1)
  1. DUODOPA [Suspect]
     Active Substance: CARBIDOPA\LEVODOPA
     Indication: PARKINSON^S DISEASE
     Dosage: 100ML CASSETTE, 1 CASSETTE DAILY
     Route: 050

REACTIONS (4)
  - Parkinson^s disease [Recovered/Resolved]
  - Dyskinesia [Recovered/Resolved]
  - Discomfort [Recovered/Resolved]
  - Panic reaction [Recovered/Resolved]
